FAERS Safety Report 7781623-9 (Version None)
Quarter: 2011Q3

REPORT INFORMATION
  Report Type: 
  Country: None (occurrence: None)
  Receive Date: 20110927
  Receipt Date: 20110921
  Transmission Date: 20111222
  Serious: Yes (Hospitalization)
  Sender: FDA-Public Use
  Company Number: CHPA2011US06764

PATIENT
  Age: 82 Year
  Sex: Male
  Weight: 70.295 kg

DRUGS (7)
  1. OXYCONTIN [Concomitant]
     Indication: PAIN
  2. ANTICOAGULANTS [Concomitant]
     Indication: ANTICOAGULANT THERAPY
  3. BENEFIBER W/ WHEAT DEXTRIN [Suspect]
     Indication: DIVERTICULITIS
     Dosage: UNK , UNK
     Route: 048
     Dates: start: 20110919
  4. ANALGESICS,OTHER [Concomitant]
     Indication: PAIN
  5. MIRALAX [Suspect]
     Indication: CONSTIPATION
     Route: 048
  6. BENEFIBER W/ WHEAT DEXTRIN [Suspect]
     Indication: CONSTIPATION
     Dosage: 2 TSP, QD
     Route: 048
  7. BENEFIBER W/ WHEAT DEXTRIN [Suspect]
     Dosage: 1 TSP, QD
     Route: 048

REACTIONS (5)
  - MELAENA [None]
  - KNEE ARTHROPLASTY [None]
  - OFF LABEL USE [None]
  - ABDOMINAL PAIN UPPER [None]
  - CONSTIPATION [None]
